FAERS Safety Report 10254693 (Version 5)
Quarter: 2014Q3

REPORT INFORMATION
  Report Type: Spontaneous
  Country: US (occurrence: US)
  Receive Date: 20140624
  Receipt Date: 20140926
  Transmission Date: 20150326
  Serious: Yes (Life-Threatening, Hospitalization, Other)
  Sender: FDA-Public Use
  Company Number: 2013SP008644

PATIENT
  Age: 66 Year
  Sex: Female
  Weight: 68.9 kg

DRUGS (9)
  1. FOLINIC ACID [Suspect]
     Active Substance: LEUCOVORIN
     Indication: COLORECTAL CANCER
     Route: 042
     Dates: start: 20131105
  2. BEVACIZUMAB [Suspect]
     Active Substance: BEVACIZUMAB
     Indication: COLORECTAL CANCER
     Route: 042
     Dates: start: 20131105
  3. FLUOROURACIL. [Suspect]
     Active Substance: FLUOROURACIL
     Indication: COLORECTAL CANCER
     Route: 042
     Dates: start: 20131105, end: 201311
  4. OCTREOTIDE [Concomitant]
     Active Substance: OCTREOTIDE
     Indication: PRODUCT USED FOR UNKNOWN INDICATION
     Dates: start: 20140430, end: 20140503
  5. OXALIPLATIN. [Suspect]
     Active Substance: OXALIPLATIN
     Indication: COLORECTAL CANCER
     Route: 042
     Dates: start: 20131105
  6. FLUOROURACIL. [Suspect]
     Active Substance: FLUOROURACIL
     Indication: COLORECTAL CANCER
     Route: 042
     Dates: start: 20131203
  7. PANTOPRAZOLE [Concomitant]
     Active Substance: PANTOPRAZOLE SODIUM
     Indication: PRODUCT USED FOR UNKNOWN INDICATION
     Dates: start: 20140430, end: 20140508
  8. IRINOTECAN [Suspect]
     Active Substance: IRINOTECAN
     Indication: COLORECTAL CANCER
     Route: 042
     Dates: start: 20131105, end: 201311
  9. IRINOTECAN [Suspect]
     Active Substance: IRINOTECAN
     Indication: COLORECTAL CANCER
     Route: 042
     Dates: start: 20131203, end: 20131231

REACTIONS (10)
  - Diarrhoea [Recovered/Resolved]
  - Flatulence [Unknown]
  - Vomiting [Unknown]
  - Intestinal obstruction [Recovered/Resolved]
  - Nausea [Unknown]
  - Anxiety [Unknown]
  - Dehydration [Unknown]
  - Abdominal pain [Recovered/Resolved]
  - Constipation [Unknown]
  - Ileus [Recovered/Resolved]

NARRATIVE: CASE EVENT DATE: 20131113
